FAERS Safety Report 23183077 (Version 2)
Quarter: 2023Q4

REPORT INFORMATION
  Report Type: Report from Study
  Country: US (occurrence: US)
  Receive Date: 20231114
  Receipt Date: 20231209
  Transmission Date: 20240110
  Serious: No
  Sender: FDA-Public Use
  Company Number: US-SA-SAC20231109000034

PATIENT
  Age: 54 Year
  Sex: Male
  Weight: 107.9 kg

DRUGS (1)
  1. CABAZITAXEL [Suspect]
     Active Substance: CABAZITAXEL
     Indication: Prostate cancer
     Dosage: 60 MG, Q3W
     Route: 041
     Dates: start: 20231017

REACTIONS (2)
  - Weight increased [Recovering/Resolving]
  - Weight decreased [Unknown]
